FAERS Safety Report 8439438 (Version 3)
Quarter: 2013Q1

REPORT INFORMATION
  Report Type: Spontaneous
  Country: JP (occurrence: JP)
  Receive Date: 20120302
  Receipt Date: 20130116
  Transmission Date: 20140127
  Serious: Yes (Other)
  Sender: FDA-Public Use
  Company Number: PHHY2012JP017738

PATIENT
  Age: 70 Year
  Sex: Female

DRUGS (3)
  1. EXJADE [Suspect]
     Indication: ACUTE MYELOID LEUKAEMIA
     Dosage: 20 MG/KG, UNK
     Route: 048
     Dates: start: 201001
  2. BLOOD TRANSFUSION, AUXILIARY PRODUCTS [Concomitant]
     Dosage: 4 UNITS PER MONTH
  3. BLOOD TRANSFUSION, AUXILIARY PRODUCTS [Concomitant]
     Dosage: 2 U, UNK
     Dates: start: 201003

REACTIONS (2)
  - Pneumonia [Recovered/Resolved]
  - Serum ferritin increased [Recovering/Resolving]
